FAERS Safety Report 5168006-5 (Version None)
Quarter: 2006Q4

REPORT INFORMATION
  Report Type: 
  Country: None (occurrence: None)
  Receive Date: 20061208
  Receipt Date: 20060118
  Transmission Date: 20070319
  Serious: No
  Sender: FDA-Public Use
  Company Number: US-GLAXOSMITHKLINE-A0589898A

PATIENT
  Sex: Male

DRUGS (4)
  1. AVANDAMET [Suspect]
     Route: 048
  2. AVANDIA [Suspect]
     Route: 048
  3. GLUCOPHAGE [Suspect]
  4. UNKNOWN [Concomitant]

REACTIONS (1)
  - VISUAL DISTURBANCE [None]
